FAERS Safety Report 12828351 (Version 3)
Quarter: 2016Q4

REPORT INFORMATION
  Report Type: Spontaneous
  Country: FR (occurrence: FR)
  Receive Date: 20161007
  Receipt Date: 20161019
  Transmission Date: 20170207
  Serious: Yes (Hospitalization, Other)
  Sender: FDA-Public Use
  Company Number: FR-BEH-2016073910

PATIENT
  Age: 62 Year
  Sex: Female
  Weight: 60 kg

DRUGS (5)
  1. VERSATIS [Concomitant]
     Active Substance: LIDOCAINE
     Indication: NEURALGIA
     Dosage: 1 UNK, UNK
     Route: 003
  2. PRIVIGEN [Suspect]
     Active Substance: HUMAN IMMUNOGLOBULIN G
     Indication: CHRONIC INFLAMMATORY DEMYELINATING POLYRADICULONEUROPATHY
     Dosage: UNK
     Route: 042
  3. PRIVIGEN [Suspect]
     Active Substance: HUMAN IMMUNOGLOBULIN G
     Dosage: 120 G, TOT, RATE 0.3 ML/KG/HR UP TO 0.7 ML/KG/HR
     Route: 042
     Dates: start: 20160926, end: 20160929
  4. PRIVIGEN [Suspect]
     Active Substance: HUMAN IMMUNOGLOBULIN G
     Dosage: UNK
     Route: 042
  5. PRIVIGEN [Suspect]
     Active Substance: HUMAN IMMUNOGLOBULIN G
     Dosage: 25 ML/H
     Route: 042
     Dates: start: 20160628, end: 20160630

REACTIONS (8)
  - Vomiting projectile [Unknown]
  - Phonophobia [Recovered/Resolved]
  - Vomiting projectile [Recovered/Resolved]
  - Unevaluable event [Unknown]
  - Meningitis aseptic [Recovered/Resolved]
  - Tension headache [Recovered/Resolved]
  - Meningism [Unknown]
  - Photophobia [Recovered/Resolved]

NARRATIVE: CASE EVENT DATE: 201606
